FAERS Safety Report 17053267 (Version 1)
Quarter: 2019Q4

REPORT INFORMATION
  Report Type: Spontaneous
  Country: US (occurrence: US)
  Receive Date: 20191120
  Receipt Date: 20191120
  Transmission Date: 20200122
  Serious: No
  Sender: FDA-Public Use
  Company Number: US-PFIZER INC-2019497830

PATIENT
  Age: 71 Year

DRUGS (21)
  1. ASPARTAME [Suspect]
     Active Substance: ASPARTAME
     Dosage: UNK
  2. BACTRIM [Suspect]
     Active Substance: SULFAMETHOXAZOLE\TRIMETHOPRIM
     Dosage: UNK
  3. CECLOR [Suspect]
     Active Substance: CEFACLOR
     Dosage: UNK
  4. TOLMETIN [Suspect]
     Active Substance: TOLMETIN
     Dosage: UNK
  5. ASPARAGUS. [Suspect]
     Active Substance: ASPARAGUS
  6. METOCLOPRAMIDE HCL [Suspect]
     Active Substance: METOCLOPRAMIDE HYDROCHLORIDE
     Dosage: UNK
  7. LAMISIL [Suspect]
     Active Substance: TERBINAFINE HYDROCHLORIDE
     Dosage: UNK
  8. NAPROXEN SODIUM. [Suspect]
     Active Substance: NAPROXEN SODIUM
     Dosage: UNK
  9. CEFTIN [CEFTRIAXONE] [Suspect]
     Active Substance: CEFTRIAXONE
     Dosage: UNK
  10. SULINDAC. [Suspect]
     Active Substance: SULINDAC
     Dosage: UNK
  11. PIROXICAM. [Suspect]
     Active Substance: PIROXICAM
     Dosage: UNK
  12. KETOPROFEN. [Suspect]
     Active Substance: KETOPROFEN
     Dosage: UNK
  13. LODINE [Suspect]
     Active Substance: ETODOLAC
     Dosage: UNK
  14. FLEXERIL [Suspect]
     Active Substance: CYCLOBENZAPRINE HYDROCHLORIDE
     Dosage: UNK
  15. MOTRIN [Suspect]
     Active Substance: IBUPROFEN
     Dosage: UNK
  16. RIFAXIMIN. [Suspect]
     Active Substance: RIFAXIMIN
     Dosage: UNK
  17. ANSAID [Suspect]
     Active Substance: FLURBIPROFEN
     Dosage: UNK
  18. MONOSODIUM GLUTAMATE [Suspect]
     Active Substance: MONOSODIUM GLUTAMATE
     Dosage: UNK
  19. TIZANIDINE. [Suspect]
     Active Substance: TIZANIDINE
     Dosage: UNK
  20. KEFLEX [Suspect]
     Active Substance: CEPHALEXIN
     Dosage: UNK
  21. REMICADE [Suspect]
     Active Substance: INFLIXIMAB
     Dosage: UNK

REACTIONS (1)
  - Drug hypersensitivity [Unknown]
